FAERS Safety Report 6535075-7 (Version None)
Quarter: 2010Q1

REPORT INFORMATION
  Report Type: 
  Country: None (occurrence: None)
  Receive Date: 20100113
  Receipt Date: 20100111
  Transmission Date: 20100710
  Serious: Yes (Hospitalization, Other)
  Sender: FDA-Public Use
  Company Number: US-ASTRAZENECA-2007UW08815

PATIENT
  Age: 14964 Day
  Sex: Female
  Weight: 66.4 kg

DRUGS (38)
  1. SEROQUEL [Suspect]
     Indication: HALLUCINATION, AUDITORY
     Route: 048
     Dates: start: 19950101, end: 20050101
  2. SEROQUEL [Suspect]
     Indication: BIPOLAR DISORDER
     Route: 048
     Dates: start: 19950101, end: 20050101
  3. SEROQUEL [Suspect]
     Indication: DEPRESSION
     Route: 048
     Dates: start: 19950101, end: 20050101
  4. SEROQUEL [Suspect]
     Route: 048
     Dates: start: 19980101, end: 20030101
  5. SEROQUEL [Suspect]
     Route: 048
     Dates: start: 19980101, end: 20030101
  6. SEROQUEL [Suspect]
     Route: 048
     Dates: start: 19980101, end: 20030101
  7. SEROQUEL [Suspect]
     Route: 048
     Dates: start: 20060225
  8. SEROQUEL [Suspect]
     Route: 048
     Dates: start: 20060225
  9. SEROQUEL [Suspect]
     Route: 048
     Dates: start: 20060225
  10. RISPERDAL [Suspect]
     Route: 065
  11. ZYPREXA [Suspect]
     Route: 065
  12. HALDOL [Concomitant]
     Route: 065
     Dates: start: 20050101
  13. THORAZINE [Concomitant]
     Route: 065
     Dates: start: 20050101
  14. TRILAFON [Concomitant]
     Route: 065
     Dates: start: 20050101
  15. NOVOLOG [Concomitant]
     Dosage: 30 UNITS TWICE A DAY.
     Route: 058
  16. METOCLOPRAMIDE [Concomitant]
     Route: 048
  17. ZOCOR [Concomitant]
     Route: 048
  18. ALBUTEROL [Concomitant]
     Dosage: 90 MCG
     Route: 045
  19. ENDOCET/PERCOCET [Concomitant]
     Dosage: 10 MG - 325 MG
     Route: 048
  20. TYLENOL (CAPLET) [Concomitant]
     Route: 065
  21. LISINOPRIL [Concomitant]
     Dosage: 10 - 20 MG
     Route: 048
  22. PREVACID [Concomitant]
     Route: 048
  23. OMNICEF [Concomitant]
     Route: 048
  24. AVANDIA [Concomitant]
     Route: 048
  25. PRAVACHOL [Concomitant]
     Route: 048
  26. ACTOPLUS MET [Concomitant]
     Route: 065
  27. NASONEX [Concomitant]
     Dosage: 50 MCG
     Route: 045
  28. FLOXIN [Concomitant]
     Route: 065
  29. LANTUS [Concomitant]
     Route: 065
  30. FLUCONAZOLE [Concomitant]
     Dosage: 100-150 MG
     Route: 048
  31. CRESTOR [Concomitant]
     Route: 048
  32. HUMALOG [Concomitant]
     Dosage: 100 UNIT/ML
     Route: 030
  33. AVELOX [Concomitant]
     Route: 048
  34. SINEQUAN [Concomitant]
     Route: 065
  35. FLEXERIL [Concomitant]
     Route: 065
  36. PROMETHAZINE [Concomitant]
     Route: 042
  37. MYTUSSIN [Concomitant]
     Route: 065
  38. TRAZODONE HCL [Concomitant]
     Route: 065

REACTIONS (31)
  - ABDOMINAL PAIN [None]
  - ASTHENIA [None]
  - BLOOD CHOLESTEROL INCREASED [None]
  - CARDIAC MURMUR [None]
  - CHOLELITHIASIS [None]
  - DEHYDRATION [None]
  - DERMAL CYST [None]
  - DIABETES MELLITUS INADEQUATE CONTROL [None]
  - DIABETIC KETOACIDOSIS [None]
  - DIABETIC RETINOPATHY [None]
  - DIZZINESS [None]
  - DYSPNOEA [None]
  - FEELING ABNORMAL [None]
  - GASTRITIS [None]
  - HEADACHE [None]
  - HYPERKALAEMIA [None]
  - HYPERLIPIDAEMIA [None]
  - HYPERPROLACTINAEMIA [None]
  - LETHARGY [None]
  - MALAISE [None]
  - METABOLIC ACIDOSIS [None]
  - ORAL CANDIDIASIS [None]
  - PANCREATITIS [None]
  - RENAL FAILURE CHRONIC [None]
  - SOMNOLENCE [None]
  - SUBCUTANEOUS ABSCESS [None]
  - SWELLING [None]
  - TOBACCO ABUSE [None]
  - TYPE 2 DIABETES MELLITUS [None]
  - URINARY TRACT INFECTION [None]
  - VULVOVAGINAL CANDIDIASIS [None]
